FAERS Safety Report 20411579 (Version 2)
Quarter: 2022Q1

REPORT INFORMATION
  Report Type: Report from Study
  Country: AU (occurrence: AU)
  Receive Date: 20220201
  Receipt Date: 20220303
  Transmission Date: 20220423
  Serious: Yes (Hospitalization)
  Sender: FDA-Public Use
  Company Number: AU-JNJFOC-20211238267

PATIENT
  Age: 42 Year
  Sex: Female

DRUGS (12)
  1. SPRAVATO [Suspect]
     Active Substance: ESKETAMINE
     Indication: Product used for unknown indication
     Dosage: SPRAVATO 5TH DOSE
     Dates: start: 20211213
  2. SPRAVATO [Suspect]
     Active Substance: ESKETAMINE
     Dosage: SPRAVATO 6TH DOSE
     Dates: start: 20211215
  3. SPRAVATO [Suspect]
     Active Substance: ESKETAMINE
     Dosage: SPRAVATO 7TH DOSE
     Dates: start: 20211220
  4. SPRAVATO [Suspect]
     Active Substance: ESKETAMINE
     Dosage: SPRAVATO 8TH DOSE
     Dates: start: 20211222
  5. SPRAVATO [Suspect]
     Active Substance: ESKETAMINE
     Dosage: SPRAVATO 9TH DOSE
     Dates: start: 20220112
  6. SPRAVATO [Suspect]
     Active Substance: ESKETAMINE
     Dosage: SPRAVATO 10TH DOSE
     Dates: start: 202201
  7. SPRAVATO [Suspect]
     Active Substance: ESKETAMINE
     Dosage: SPRAVATO 11TH DOSE
     Dates: start: 20220128
  8. SPRAVATO [Suspect]
     Active Substance: ESKETAMINE
     Dosage: SPRAVATO 12TH DOSE
     Dates: start: 2022
  9. MIRTAZAPINE [Concomitant]
     Active Substance: MIRTAZAPINE
     Indication: Antidepressant therapy
     Route: 065
  10. ONDANSETRON [Concomitant]
     Active Substance: ONDANSETRON
     Indication: Nausea
     Route: 065
  11. ONDANSETRON [Concomitant]
     Active Substance: ONDANSETRON
     Route: 065
     Dates: start: 20220128
  12. MELATONIN [Concomitant]
     Active Substance: MELATONIN

REACTIONS (10)
  - Sleep disorder [Unknown]
  - Paraesthesia [Recovered/Resolved]
  - Dissociation [Recovered/Resolved]
  - Nausea [Not Recovered/Not Resolved]
  - Dizziness [Recovered/Resolved]
  - Feeling abnormal [Recovered/Resolved]
  - Hypoaesthesia [Recovered/Resolved]
  - Vision blurred [Recovered/Resolved]
  - Dysgeusia [Recovered/Resolved]
  - Dizziness [Recovered/Resolved]

NARRATIVE: CASE EVENT DATE: 20211213
